FAERS Safety Report 16986065 (Version 1)
Quarter: 2019Q4

REPORT INFORMATION
  Report Type: Spontaneous
  Country: US (occurrence: US)
  Receive Date: 20190918
  Receipt Date: 20190918
  Transmission Date: 20200122
  Serious: No
  Sender: FDA-Public Use
  Company Number: None

PATIENT
  Age: 56 Year
  Sex: Female

DRUGS (1)
  1. SOFOSBUVIR/VELSPATASVIR 400-100MG [Suspect]
     Active Substance: SOFOSBUVIR\VELPATASVIR
     Indication: HEPATITIS C
     Dosage: DOSAGE 400-100 MG
     Route: 048
     Dates: start: 20190731

REACTIONS (2)
  - Fatigue [None]
  - Headache [None]

NARRATIVE: CASE EVENT DATE: 20190731
